FAERS Safety Report 5700425-8 (Version None)
Quarter: 2008Q2

REPORT INFORMATION
  Report Type: 
  Country: None (occurrence: None)
  Receive Date: 20080410
  Receipt Date: 20080328
  Transmission Date: 20081010
  Serious: Yes (Other)
  Sender: FDA-Public Use
  Company Number: CA-PFIZER INC-2008029598

PATIENT
  Age: 59 Year
  Sex: Male

DRUGS (2)
  1. CHAMPIX [Suspect]
     Route: 048
  2. GLYBURIDE [Concomitant]
     Indication: DIABETES MELLITUS
     Route: 048

REACTIONS (4)
  - BLOOD GLUCOSE INCREASED [None]
  - POLYDIPSIA [None]
  - PRESYNCOPE [None]
  - PRURITUS [None]
